FAERS Safety Report 8759855 (Version 2)
Quarter: 2013Q1

REPORT INFORMATION
  Report Type: Spontaneous
  Country: US (occurrence: US)
  Receive Date: 20120829
  Receipt Date: 20130306
  Transmission Date: 20140127
  Serious: Yes (Hospitalization)
  Sender: FDA-Public Use
  Company Number: US-ASTRAZENECA-2012SE60342

PATIENT
  Age: 66 Year
  Sex: Female
  Weight: 88.5 kg

DRUGS (8)
  1. SEROQUEL [Suspect]
     Indication: SLEEP DISORDER
     Route: 048
  2. SEROQUEL [Suspect]
     Indication: INSOMNIA
     Route: 048
  3. SEROQUEL [Suspect]
     Indication: SLEEP DISORDER
     Route: 048
     Dates: start: 1998, end: 20130115
  4. SEROQUEL [Suspect]
     Indication: INSOMNIA
     Route: 048
     Dates: start: 1998, end: 20130115
  5. AMBIEN [Concomitant]
  6. PHENOBARBITAL [Concomitant]
     Indication: SLEEP DISORDER
  7. OVER THE COUNTER SLEEP AID [Concomitant]
     Indication: SLEEP DISORDER
  8. 12 DIFFERENT MEDICATIONS [Concomitant]

REACTIONS (7)
  - Pneumonia [Unknown]
  - Cardiac failure congestive [Unknown]
  - Malaise [Unknown]
  - Insomnia [Not Recovered/Not Resolved]
  - Muscle spasms [Unknown]
  - Off label use [Not Recovered/Not Resolved]
  - Drug dose omission [Not Recovered/Not Resolved]
